FAERS Safety Report 10558702 (Version 1)
Quarter: 2014Q4

REPORT INFORMATION
  Report Type: Spontaneous
  Country: TW (occurrence: TW)
  Receive Date: 20141031
  Receipt Date: 20141031
  Transmission Date: 20150529
  Serious: Yes (Other)
  Sender: FDA-Public Use
  Company Number: PHHY2014TW141117

PATIENT
  Age: 62 Year
  Sex: Female

DRUGS (2)
  1. QUETIAPINE [Suspect]
     Active Substance: QUETIAPINE
     Indication: MAJOR DEPRESSION
     Dosage: 200 MG, QD
     Route: 065
  2. VENLAFAXINE [Suspect]
     Active Substance: VENLAFAXINE HYDROCHLORIDE
     Indication: MAJOR DEPRESSION
     Dosage: 150 MG, QD
     Route: 065

REACTIONS (10)
  - Anhedonia [Unknown]
  - Fatigue [Unknown]
  - Insomnia [Unknown]
  - Suicidal ideation [Unknown]
  - Major depression [Unknown]
  - Affective disorder [Unknown]
  - Depression [Unknown]
  - Decreased appetite [Unknown]
  - Gingival pain [Unknown]
  - Drug ineffective [Unknown]
